FAERS Safety Report 11877187 (Version 1)
Quarter: 2015Q4

REPORT INFORMATION
  Report Type: Spontaneous
  Country: US (occurrence: US)
  Receive Date: 20151229
  Receipt Date: 20151229
  Transmission Date: 20160305
  Serious: No
  Sender: FDA-Public Use
  Company Number: US-TARO-2015TAR01091

PATIENT
  Age: 68 Year
  Sex: Female

DRUGS (14)
  1. PANTOPRAZOLE [Concomitant]
     Active Substance: PANTOPRAZOLE SODIUM
     Dosage: 20 MG, 1X/DAY
     Route: 048
     Dates: start: 20151020
  2. VITAMIN D3 [Concomitant]
     Active Substance: CHOLECALCIFEROL
     Dosage: 6000 IU, 1X/DAY
     Route: 048
  3. SENNA [Concomitant]
     Active Substance: SENNA LEAF\SENNOSIDES\SENNOSIDES A AND B
     Dosage: 8.6 MG, 2X/DAY AS NEEDED
     Route: 048
     Dates: start: 20151030
  4. ASPIRIN. [Concomitant]
     Active Substance: ASPIRIN
     Dosage: 81 MG, 1X/DAY
     Route: 048
     Dates: end: 20151107
  5. LOPERAMIDE [Concomitant]
     Active Substance: LOPERAMIDE
     Dosage: 2 MG, 6X/DAY AS NEEDED
     Route: 048
     Dates: start: 20151020
  6. TRIAMCINOLONE TOPICAL CREAM 0.1% [Suspect]
     Active Substance: TRIAMCINOLONE
     Indication: RASH
     Dosage: 1 DOSAGE UNITS, 2X/DAY TO ARM
     Route: 061
     Dates: start: 20151020, end: 2015
  7. TACROLIMUS. [Concomitant]
     Active Substance: TACROLIMUS
     Dosage: 4 MG, 2X/DAY
     Route: 048
     Dates: start: 20151020
  8. MYCOPHENOLATE MOFETIL. [Concomitant]
     Active Substance: MYCOPHENOLATE MOFETIL
     Dosage: 1000 MG, 3X/DAY
     Route: 048
     Dates: start: 20151020
  9. ACYCLOVIR. [Concomitant]
     Active Substance: ACYCLOVIR
     Dosage: 400 MG, 2X/DAY
     Route: 048
     Dates: start: 20151020
  10. URSODIOL. [Concomitant]
     Active Substance: URSODIOL
     Dosage: 300 MG, 3X/DAY
     Route: 048
     Dates: start: 20151020
  11. VITAMIN B12 [Concomitant]
     Active Substance: CYANOCOBALAMIN
     Dosage: 100 ?G, 1X/DAY
     Route: 048
  12. TRIAMCINOLONE TOPICAL CREAM 0.1% [Suspect]
     Active Substance: TRIAMCINOLONE
     Dosage: 1 DOSAGE UNITS, 2X/DAY
     Route: 061
     Dates: start: 20151103
  13. MULTIVITAMIN [Concomitant]
     Active Substance: VITAMINS
     Dosage: 1 DOSAGE UNITS, 1X/DAY
     Route: 048
  14. ATENOLOL. [Concomitant]
     Active Substance: ATENOLOL
     Dosage: 50 MG, 1X/DAY
     Route: 048

REACTIONS (4)
  - Graft versus host disease in skin [None]
  - Rash erythematous [Unknown]
  - Rash pruritic [None]
  - Rash maculo-papular [None]

NARRATIVE: CASE EVENT DATE: 20151106
